FAERS Safety Report 8015868-X (Version None)
Quarter: 2011Q4

REPORT INFORMATION
  Report Type: 
  Country: None (occurrence: None)
  Receive Date: 20111223
  Receipt Date: 20111222
  Transmission Date: 20120403
  Serious: Yes (Hospitalization)
  Sender: FDA-Public Use
  Company Number: SP05386

PATIENT
  Age: 50 Year
  Sex: Female

DRUGS (1)
  1. VISICOL [Suspect]
     Indication: BOWEL PREPARATION
     Dosage: (50 GM), ORAL
     Route: 048
     Dates: start: 20111129, end: 20111129

REACTIONS (7)
  - VOMITING [None]
  - BLOOD PRESSURE DECREASED [None]
  - CYANOSIS [None]
  - BRADYCARDIA [None]
  - NAUSEA [None]
  - PROCEDURAL COMPLICATION [None]
  - PERIPHERAL COLDNESS [None]
